FAERS Safety Report 4357766-9 (Version None)
Quarter: 2004Q2

REPORT INFORMATION
  Report Type: 
  Country: None (occurrence: None)
  Receive Date: 20040513
  Receipt Date: 20040503
  Transmission Date: 20050107
  Serious: Yes (Hospitalization)
  Sender: FDA-Public Use
  Company Number: BR-BRISTOL-MYERS SQUIBB COMPANY-12577482

PATIENT
  Age: 35 Year
  Sex: Female

DRUGS (4)
  1. COUMADIN [Suspect]
     Indication: PROPHYLAXIS
     Route: 048
     Dates: start: 20040303, end: 20040323
  2. MAREVAN [Suspect]
  3. CAPTOPRIL [Concomitant]
  4. AMITRIPTYLINE HCL [Concomitant]

REACTIONS (10)
  - ABDOMINAL PAIN [None]
  - BACK PAIN [None]
  - DIARRHOEA [None]
  - DRY MOUTH [None]
  - DYSPNOEA [None]
  - HAEMATOMA [None]
  - HYPERTENSION [None]
  - LIVER DISORDER [None]
  - PALPITATIONS [None]
  - VOMITING [None]
